FAERS Safety Report 7109663-3 (Version None)
Quarter: 2010Q4

REPORT INFORMATION
  Report Type: 
  Country: None (occurrence: None)
  Receive Date: 20101115
  Receipt Date: 20101115
  Transmission Date: 20110411
  Serious: Yes (Death)
  Sender: FDA-Public Use
  Company Number: None

PATIENT
  Age: 66 Year
  Sex: Male
  Weight: 83.4 kg

DRUGS (4)
  1. METHOXYAMINE 15 MG/M2 [Suspect]
     Indication: PANCREATIC CARCINOMA
     Dosage: 30 MG IV
     Route: 042
     Dates: start: 20100930
  2. METHOXYAMINE 15 MG/M2 [Suspect]
     Indication: PANCREATIC CARCINOMA
     Dosage: 30 MG IV
     Route: 042
     Dates: start: 20101011
  3. TEMOZOLOMIDE [Suspect]
     Indication: PANCREATIC CARCINOMA
     Dosage: 300 MG PO
     Route: 048
     Dates: start: 20101011, end: 20101015
  4. TEMOZOLOMIDE [Suspect]
     Indication: PANCREATIC CARCINOMA
     Dosage: 300 MG PO
     Route: 048
     Dates: start: 20100927

REACTIONS (5)
  - ABDOMINAL DISTENSION [None]
  - ABDOMINAL PAIN [None]
  - ASCITES [None]
  - HEPATIC LESION [None]
  - PLEURAL EFFUSION [None]
